FAERS Safety Report 9068377 (Version 1)
Quarter: 2013Q1

REPORT INFORMATION
  Report Type: Spontaneous
  Country: US (occurrence: None)
  Receive Date: 20130212
  Receipt Date: 20130212
  Transmission Date: 20140127
  Serious: No
  Sender: FDA-Public Use
  Company Number: None

PATIENT
  Age: 59 Year
  Sex: Female
  Weight: 90.72 kg

DRUGS (1)
  1. JANUVIA [Suspect]
     Indication: BLOOD GLUCOSE INCREASED
     Dosage: 1TAB  DAILY  PO
     Route: 048
     Dates: start: 20121214, end: 20130114

REACTIONS (4)
  - Rash generalised [None]
  - Skin discolouration [None]
  - Pruritus [None]
  - Condition aggravated [None]
